FAERS Safety Report 20872428 (Version 2)
Quarter: 2022Q2

REPORT INFORMATION
  Report Type: Spontaneous
  Country: GR (occurrence: GR)
  Receive Date: 20220525
  Receipt Date: 20220603
  Transmission Date: 20220721
  Serious: Yes (Other)
  Sender: FDA-Public Use
  Company Number: GR-UCBSA-2022028981

PATIENT
  Age: 74 Year
  Sex: Male

DRUGS (3)
  1. KEPPRA [Suspect]
     Active Substance: LEVETIRACETAM
     Indication: Generalised tonic-clonic seizure
     Dosage: 500 MILLIGRAM, 2X/DAY (BID)
  2. LAMOTRIGINE [Concomitant]
     Active Substance: LAMOTRIGINE
     Indication: Seizure
     Dosage: 200 MILLIGRAM PER DAY
  3. GABAPENTIN [Concomitant]
     Active Substance: GABAPENTIN
     Indication: Generalised tonic-clonic seizure
     Dosage: 1200 MILLIGRAM PER DAY

REACTIONS (2)
  - Affective disorder [Recovered/Resolved]
  - Irritability [Recovered/Resolved]
